FAERS Safety Report 4897858-9 (Version None)
Quarter: 2006Q1

REPORT INFORMATION
  Report Type: 
  Country: None (occurrence: None)
  Receive Date: 20060201
  Receipt Date: 20060103
  Transmission Date: 20060701
  Serious: Yes (Hospitalization)
  Sender: FDA-Public Use
  Company Number: FR-GLAXOSMITHKLINE-B0406198A

PATIENT
  Age: 52 Year
  Sex: Female
  Weight: 115 kg

DRUGS (12)
  1. AUGMENTIN '125' [Suspect]
     Indication: INFECTION PROPHYLAXIS
     Dosage: 3G PER DAY
     Route: 048
     Dates: start: 20051004, end: 20051029
  2. SERETIDE [Suspect]
     Indication: ASTHMA
     Dosage: 2PUFF TWICE PER DAY
     Route: 055
  3. IMOVANE [Suspect]
     Indication: SLEEP DISORDER
     Dosage: 7.5MG PER DAY
     Route: 048
  4. OFLOCET [Suspect]
     Indication: INFECTION PROPHYLAXIS
     Dosage: 2UNIT PER DAY
     Route: 048
     Dates: start: 20051019, end: 20051027
  5. LEVOTHYROX [Suspect]
     Indication: HYPOTHYROIDISM
     Dosage: 7.5MCG PER DAY
     Route: 048
  6. NOVONORM [Suspect]
     Dosage: 1MG PER DAY
     Route: 048
  7. PERFALGAN [Concomitant]
     Dates: start: 20051029, end: 20051030
  8. DOLIPRANE [Concomitant]
     Dates: start: 20051030, end: 20051103
  9. RISORDAN [Concomitant]
     Dates: start: 20051027
  10. HEPARIN [Concomitant]
     Dates: start: 20051027
  11. LASILIX [Concomitant]
     Dates: start: 20051027
  12. INSULIN [Concomitant]
     Dates: start: 20051027

REACTIONS (4)
  - ACUTE GENERALISED EXANTHEMATOUS PUSTULOSIS [None]
  - INFLAMMATION [None]
  - RESPIRATORY FAILURE [None]
  - TOXIC SKIN ERUPTION [None]
